FAERS Safety Report 4797432-9 (Version None)
Quarter: 2005Q4

REPORT INFORMATION
  Report Type: 
  Country: None (occurrence: None)
  Receive Date: 20051006
  Receipt Date: 20051006
  Transmission Date: 20060501
  Serious: Yes (Hospitalization)
  Sender: FDA-Public Use
  Company Number: None

PATIENT
  Age: 70 Year
  Weight: 115.4 kg

DRUGS (2)
  1. WARFARIN [Suspect]
  2. LEVOFLOXACIN [Suspect]

REACTIONS (3)
  - CELLULITIS [None]
  - INTERNATIONAL NORMALISED RATIO INCREASED [None]
  - WOUND HAEMORRHAGE [None]
